FAERS Safety Report 9224617 (Version 1)
Quarter: 2013Q2

REPORT INFORMATION
  Report Type: Spontaneous
  Country: NL (occurrence: None)
  Receive Date: 20130409
  Receipt Date: 20130409
  Transmission Date: 20140414
  Serious: Yes (Death)
  Sender: FDA-Public Use
  Company Number: 2013-1430

PATIENT
  Age: 86 Year
  Sex: Male

DRUGS (4)
  1. SOMATULINE [Suspect]
     Indication: GASTROINTESTINAL CARCINOMA
     Dosage: 90 MG (90 MG, 1 IN 28 D), SUBCUTANEOUS
     Route: 058
     Dates: start: 20110721, end: 20130319
  2. SOMATULINE [Suspect]
     Indication: RENAL CANCER
     Dosage: 90 MG (90 MG, 1 IN 28 D), SUBCUTANEOUS
     Route: 058
     Dates: start: 20110721, end: 20130319
  3. SOMATULINE [Suspect]
     Indication: NEOPLASM MALIGNANT
     Dosage: 90 MG (90 MG, 1 IN 28 D), SUBCUTANEOUS
     Route: 058
     Dates: start: 20110721, end: 20130319
  4. SOMATULINE [Suspect]
     Indication: OFF LABEL USE
     Dosage: 90 MG (90 MG, 1 IN 28 D), SUBCUTANEOUS
     Route: 058
     Dates: start: 20110721, end: 20130319

REACTIONS (1)
  - Death [None]
